FAERS Safety Report 5503612-7 (Version None)
Quarter: 2007Q4

REPORT INFORMATION
  Report Type: 
  Country: None (occurrence: None)
  Receive Date: 20071030
  Receipt Date: 20071018
  Transmission Date: 20080405
  Serious: Yes (Death, Life-Threatening, Hospitalization, Disabling, Other)
  Sender: FDA-Public Use
  Company Number: TRP_00999_2007

PATIENT
  Sex: Male
  Weight: 88 kg

DRUGS (8)
  1. AMPHOTERICIN B [Suspect]
     Indication: PNEUMONIA
     Dosage: (100 MG QD INTRAVENOUS, (100 MG TID INTRAVENOUS
     Route: 042
     Dates: start: 20070910, end: 20070911
  2. AMPHOTERICIN B [Suspect]
     Indication: PNEUMONIA
     Dosage: (100 MG QD INTRAVENOUS, (100 MG TID INTRAVENOUS
     Route: 042
     Dates: start: 20070911
  3. IMIPENEM [Concomitant]
  4. TEICOPLANIN [Concomitant]
  5. NEUPOGEN [Concomitant]
  6. ACYCLOVIR [Concomitant]
  7. ETOPOSIDE [Concomitant]
  8. CYTARABINE [Concomitant]

REACTIONS (12)
  - BLOOD ALBUMIN DECREASED [None]
  - BLOOD BILIRUBIN INCREASED [None]
  - BLOOD GLUCOSE INCREASED [None]
  - BLOOD LACTATE DEHYDROGENASE DECREASED [None]
  - BLOOD UREA INCREASED [None]
  - BONE MARROW FAILURE [None]
  - DISEASE PROGRESSION [None]
  - GAMMA-GLUTAMYLTRANSFERASE INCREASED [None]
  - GENERAL PHYSICAL HEALTH DETERIORATION [None]
  - HAEMOGLOBIN DECREASED [None]
  - PNEUMONIA [None]
  - PROTEIN TOTAL DECREASED [None]
